FAERS Safety Report 7992106-5 (Version None)
Quarter: 2011Q4

REPORT INFORMATION
  Report Type: 
  Country: None (occurrence: None)
  Receive Date: 20111219
  Receipt Date: 20101201
  Transmission Date: 20120403
  Serious: No
  Sender: FDA-Public Use
  Company Number: US-ASTRAZENECA-2010SE57117

PATIENT
  Age: 911 Month
  Sex: Female
  Weight: 61.7 kg

DRUGS (7)
  1. ACETYLSALICYLIC ACID SRT [Concomitant]
  2. NIASPAN [Suspect]
     Indication: BLOOD CHOLESTEROL INCREASED
     Route: 048
     Dates: start: 20050101, end: 20100101
  3. NIASPAN [Suspect]
     Route: 048
     Dates: start: 20101001
  4. ESOMEPRAZOLE MAGNESIUM [Concomitant]
  5. CRESTOR [Suspect]
     Route: 048
     Dates: start: 20100901
  6. SOLIFENACIN SUCCINATE [Concomitant]
  7. BISOPROLOL FUMARATE [Concomitant]

REACTIONS (2)
  - HYPERHIDROSIS [None]
  - MYALGIA [None]
